FAERS Safety Report 9349815 (Version 2)
Quarter: 2013Q4

REPORT INFORMATION
  Report Type: Spontaneous
  Country: GB (occurrence: None)
  Receive Date: 20130611
  Receipt Date: 20131206
  Transmission Date: 20140711
  Serious: Yes (Death)
  Sender: FDA-Public Use
  Company Number: SP06716

PATIENT
  Age: 62 Year
  Sex: Female
  Weight: 72 kg

DRUGS (14)
  1. MOVIPREP [Suspect]
     Indication: BOWEL PREPARATION
     Dosage: 1 SACHET
     Route: 048
     Dates: start: 20130527
  2. WARFARIN [Concomitant]
  3. AMITRIPTYLINE [Concomitant]
  4. ATORVASTATIN [Concomitant]
  5. BUMETANIDE [Concomitant]
  6. LACTULOSE [Concomitant]
  7. LAXIDO [Concomitant]
  8. NAPROXEN [Concomitant]
  9. OMEPRAZOLE [Concomitant]
  10. RAMIPRIL [Concomitant]
  11. TILDIEM [Concomitant]
  12. TRAMADOL [Concomitant]
  13. SERTRALINE [Concomitant]
  14. FUSIDIC ACID [Concomitant]

REACTIONS (2)
  - Death [None]
  - Pulmonary oedema [None]
